FAERS Safety Report 24071580 (Version 1)
Quarter: 2024Q3

REPORT INFORMATION
  Report Type: Report from Study
  Country: JP (occurrence: JP)
  Receive Date: 20240710
  Receipt Date: 20240710
  Transmission Date: 20241017
  Serious: No
  Sender: ROCHE
  Company Number: JP-CHUGAI-2022003085

PATIENT
  Age: 4 Year
  Sex: Male
  Weight: 11.6 kg

DRUGS (6)
  1. EVRYSDI [Suspect]
     Active Substance: RISDIPLAM
     Indication: Spinal muscular atrophy
     Route: 050
     Dates: start: 20220124, end: 20220629
  2. EVRYSDI [Suspect]
     Active Substance: RISDIPLAM
     Route: 050
     Dates: start: 20220630, end: 20230517
  3. EVRYSDI [Suspect]
     Active Substance: RISDIPLAM
     Route: 050
     Dates: start: 20230518
  4. CARBOCYSTEINE [Concomitant]
     Active Substance: CARBOCYSTEINE
     Dosage: UNK
     Route: 065
  5. PRANLUKAST [Concomitant]
     Active Substance: PRANLUKAST
     Dosage: UNK
     Route: 065
  6. SODIUM FERROUS CITRATE [Concomitant]
     Active Substance: SODIUM FERROUS CITRATE
     Dosage: UNK
     Route: 065

REACTIONS (4)
  - Erythema [Recovering/Resolving]
  - Faeces soft [Recovered/Resolved]
  - Bronchitis [Recovering/Resolving]
  - Off label use [Unknown]

NARRATIVE: CASE EVENT DATE: 20220124
